FAERS Safety Report 9765134 (Version 1)
Quarter: 2013Q4

REPORT INFORMATION
  Report Type: Spontaneous
  Country: US (occurrence: None)
  Receive Date: 20131216
  Receipt Date: 20131216
  Transmission Date: 20140711
  Serious: Yes (Disabling)
  Sender: FDA-Public Use
  Company Number: None

PATIENT
  Sex: Female

DRUGS (2)
  1. CREST PRO HEALTH MOUTHWASH 24 HOUR PROTECTION -L-22635395RD [Suspect]
     Indication: DENTAL CARE
  2. CREST PRO HEALTH MOUTHWASH 24 HOUR PROTECTION -L-22635395RD [Suspect]
     Indication: DENTAL DISORDER PROPHYLAXIS

REACTIONS (4)
  - Oral discomfort [None]
  - Dysgeusia [None]
  - Parosmia [None]
  - Oropharyngeal pain [None]
